FAERS Safety Report 14296317 (Version 3)
Quarter: 2018Q1

REPORT INFORMATION
  Report Type: Spontaneous
  Country: JP (occurrence: JP)
  Receive Date: 20171218
  Receipt Date: 20180206
  Transmission Date: 20180509
  Serious: Yes (Death, Hospitalization)
  Sender: FDA-Public Use
  Company Number: JP-ACTELION-A-CH2017-164070

PATIENT
  Age: 79 Year
  Sex: Male

DRUGS (4)
  1. OXYGEN. [Concomitant]
     Active Substance: OXYGEN
  2. ADCIRCA [Suspect]
     Active Substance: TADALAFIL
     Indication: PULMONARY ARTERIAL HYPERTENSION
     Dosage: 20 MG, BID
     Route: 048
     Dates: start: 20171123, end: 20171206
  3. OFEV [Concomitant]
     Active Substance: NINTEDANIB
  4. OPSUMIT [Suspect]
     Active Substance: MACITENTAN
     Indication: PULMONARY ARTERIAL HYPERTENSION
     Dosage: 10 MG, QD
     Route: 048
     Dates: start: 20171128, end: 20171205

REACTIONS (8)
  - Pulmonary congestion [Fatal]
  - Respiratory disorder [Fatal]
  - Urine output increased [Fatal]
  - Depressed level of consciousness [Fatal]
  - Hypoxia [Fatal]
  - Cardio-respiratory arrest [Fatal]
  - Cardiac failure [Fatal]
  - Cardiomegaly [Fatal]

NARRATIVE: CASE EVENT DATE: 20171205
